FAERS Safety Report 4738807-3 (Version None)
Quarter: 2005Q3

REPORT INFORMATION
  Report Type: 
  Country: None (occurrence: None)
  Receive Date: 20050804
  Receipt Date: 20050725
  Transmission Date: 20060218
  Serious: Yes (Other)
  Sender: FDA-Public Use
  Company Number: 2005EU001642

PATIENT
  Age: 0 Day
  Sex: Male

DRUGS (5)
  1. PROGRAF [Suspect]
     Indication: RENAL TRANSPLANT
     Dosage: 3.50 MG, UID/QD, TRANSPLACENTAL; SEE IMAGE
     Route: 064
     Dates: start: 20040101, end: 20050720
  2. PROGRAF [Suspect]
     Indication: RENAL TRANSPLANT
     Dosage: 3.50 MG, UID/QD, TRANSMAMMARY
     Route: 063
     Dates: start: 20050723, end: 20050726
  3. CORTANCYL (PREDNISONE) [Suspect]
     Indication: RENAL TRANSPLANT
     Dosage: 5.00 MG, UID/QD, TRANSMAMMARY
     Route: 063
     Dates: start: 20050723, end: 20050726
  4. IMURAN [Suspect]
     Indication: RENAL TRANSPLANT
     Dosage: 50.00 MG, UID/QD, TRANSMAMMARY; SEE IMAGE
     Route: 063
     Dates: end: 20050720
  5. IMURAN [Suspect]
     Indication: RENAL TRANSPLANT
     Dosage: 50.00 MG, UID/QD, TRANSMAMMARY; SEE IMAGE
     Route: 063
     Dates: start: 20050723, end: 20050726

REACTIONS (7)
  - CAESAREAN SECTION [None]
  - DRUG EXPOSURE DURING PREGNANCY [None]
  - DRUG EXPOSURE VIA BREAST MILK [None]
  - FOETAL DISTRESS SYNDROME [None]
  - FOETAL HEART RATE DISORDER [None]
  - NEONATAL RESPIRATORY DISTRESS SYNDROME [None]
  - PREMATURE BABY [None]
